FAERS Safety Report 7552052-8 (Version None)
Quarter: 2011Q2

REPORT INFORMATION
  Report Type: 
  Country: None (occurrence: None)
  Receive Date: 20110616
  Receipt Date: 20110607
  Transmission Date: 20111010
  Serious: Yes (Other)
  Sender: FDA-Public Use
  Company Number: US-ASTRAZENECA-2010SE38554

PATIENT
  Age: 85 Year
  Sex: Female

DRUGS (13)
  1. XELODA [Concomitant]
  2. FLEXERIL [Concomitant]
  3. OSTEO BIFLEX [Concomitant]
  4. KLOR-CON [Concomitant]
  5. NEXIUM [Suspect]
     Route: 048
  6. NAPROXEN [Concomitant]
  7. LASIX [Concomitant]
  8. CALCIUM CARBONATE [Concomitant]
  9. METAMUCIL-2 [Concomitant]
  10. ALTONEL [Concomitant]
  11. LOVAZA [Concomitant]
  12. DOXEPIN [Concomitant]
  13. SYNTHROID [Concomitant]

REACTIONS (2)
  - COLON CANCER RECURRENT [None]
  - COLON CANCER STAGE IV [None]
